FAERS Safety Report 7092932-3 (Version None)
Quarter: 2010Q4

REPORT INFORMATION
  Report Type: 
  Country: None (occurrence: None)
  Receive Date: 20101110
  Receipt Date: 20101104
  Transmission Date: 20110411
  Serious: No
  Sender: FDA-Public Use
  Company Number: US-PFIZER INC-2010114379

PATIENT
  Sex: Female
  Weight: 46.712 kg

DRUGS (2)
  1. RELPAX [Suspect]
     Indication: MIGRAINE
     Dosage: 40 MG, DAILY
     Route: 048
     Dates: start: 20100907, end: 20100907
  2. CONCERTA [Concomitant]
     Indication: ATTENTION DEFICIT/HYPERACTIVITY DISORDER
     Dosage: 54 MG, UNK

REACTIONS (6)
  - BALANCE DISORDER [None]
  - FEELING COLD [None]
  - HEADACHE [None]
  - NAUSEA [None]
  - PAIN [None]
  - PHOTOPHOBIA [None]
